FAERS Safety Report 9594919 (Version 3)
Quarter: 2014Q2

REPORT INFORMATION
  Report Type: Report from Study
  Country: DE (occurrence: DE)
  Receive Date: 20131004
  Receipt Date: 20140516
  Transmission Date: 20141212
  Serious: Yes (Hospitalization)
  Sender: FDA-Public Use
  Company Number: PHHO2012DE001904

PATIENT
  Sex: 0

DRUGS (5)
  1. SOM230 [Suspect]
     Indication: NEUROENDOCRINE TUMOUR
     Dosage: 60 MG, UNK
     Route: 030
     Dates: start: 20110308, end: 20120109
  2. AFINITOR [Suspect]
     Indication: NEUROENDOCRINE TUMOUR
     Dosage: 10 MG, UNK
     Route: 048
     Dates: start: 20110531, end: 20120109
  3. PANTOZOL [Concomitant]
     Indication: DYSPEPSIA
     Dosage: 40 MG, UNK
     Dates: start: 20110514
  4. PANTOZOL [Concomitant]
     Dosage: 40 MG, UNK
     Dates: start: 20110514
  5. NOVALGIN [Concomitant]
     Indication: ANALGESIC THERAPY
     Dosage: 40 DRP, UNK
     Dates: start: 20110327

REACTIONS (5)
  - Transaminases increased [Recovered/Resolved]
  - Weight decreased [Not Recovered/Not Resolved]
  - Vomiting [Not Recovered/Not Resolved]
  - Subileus [Recovered/Resolved]
  - Intestinal obstruction [Recovered/Resolved]
